FAERS Safety Report 13144972 (Version 2)
Quarter: 2017Q1

REPORT INFORMATION
  Report Type: Spontaneous
  Country: US (occurrence: US)
  Receive Date: 20170124
  Receipt Date: 20170131
  Transmission Date: 20170428
  Serious: Yes (Life-Threatening, Hospitalization)
  Sender: FDA-Public Use
  Company Number: US-JNJFOC-20161209689

PATIENT
  Age: 40 Year
  Sex: Male
  Weight: 112 kg

DRUGS (1)
  1. XARELTO [Suspect]
     Active Substance: RIVAROXABAN
     Indication: DEEP VEIN THROMBOSIS
     Route: 048
     Dates: start: 20140404, end: 20141210

REACTIONS (8)
  - Pulmonary embolism [Unknown]
  - Cardiac ventricular thrombosis [Recovered/Resolved]
  - Cardiogenic shock [Recovered/Resolved]
  - Internal haemorrhage [Unknown]
  - Treatment failure [Unknown]
  - Myocardial infarction [Unknown]
  - Pericardial haemorrhage [Recovered/Resolved]
  - Pulmonary artery thrombosis [Recovered/Resolved]

NARRATIVE: CASE EVENT DATE: 20141211
